FAERS Safety Report 7922199-2 (Version None)
Quarter: 2011Q4

REPORT INFORMATION
  Report Type: 
  Country: None (occurrence: None)
  Receive Date: 20111117
  Receipt Date: 20110128
  Transmission Date: 20120403
  Serious: No
  Sender: FDA-Public Use
  Company Number: US-AMGEN-USASP2010009516

PATIENT
  Age: 52 Year
  Sex: Male

DRUGS (2)
  1. ENBREL [Suspect]
     Indication: PSORIATIC ARTHROPATHY
     Dates: start: 20050429
  2. ENBREL [Suspect]
     Indication: PSORIASIS

REACTIONS (2)
  - INJECTION SITE PUSTULE [None]
  - INJECTION SITE HAEMORRHAGE [None]
